FAERS Safety Report 5993649-6 (Version None)
Quarter: 2008Q4

REPORT INFORMATION
  Report Type: 
  Country: None (occurrence: None)
  Receive Date: 20081212
  Receipt Date: 20081209
  Transmission Date: 20090506
  Serious: Yes (Death, Hospitalization)
  Sender: FDA-Public Use
  Company Number: PHHY2008AR31323

PATIENT
  Sex: Female

DRUGS (2)
  1. DIOVAN [Suspect]
     Indication: BLOOD PRESSURE
     Dosage: 80 MG
     Dates: start: 20070101
  2. CORTICOSTEROIDS [Concomitant]

REACTIONS (2)
  - DEATH [None]
  - GENERAL PHYSICAL HEALTH DETERIORATION [None]
